FAERS Safety Report 19735692 (Version 1)
Quarter: 2021Q3

REPORT INFORMATION
  Report Type: Spontaneous
  Country: GB (occurrence: GB)
  Receive Date: 20210823
  Receipt Date: 20210823
  Transmission Date: 20211014
  Serious: Yes (Hospitalization, Other)
  Sender: FDA-Public Use
  Company Number: GB-PFIZER INC-202101034228

PATIENT
  Age: 50 Year
  Sex: Male
  Weight: 86 kg

DRUGS (4)
  1. WARFARIN [Interacting]
     Active Substance: WARFARIN
     Indication: ANTIPHOSPHOLIPID SYNDROME
  2. WARFARIN [Interacting]
     Active Substance: WARFARIN
     Indication: ANTICOAGULANT THERAPY
     Dosage: 5 MG AS PER INR
     Route: 048
     Dates: start: 20201021
  3. MST CONTINUS [Concomitant]
     Active Substance: MORPHINE SULFATE
     Indication: ILL-DEFINED DISORDER
     Dosage: UNK
  4. DOXYCYCLINE MONOHYDRATE [Suspect]
     Active Substance: DOXYCYCLINE
     Indication: LOWER RESPIRATORY TRACT INFECTION
     Dosage: 100 MG OD
     Route: 048
     Dates: start: 20210730, end: 20210803

REACTIONS (3)
  - Asthenia [Unknown]
  - Haemorrhage intracranial [Recovering/Resolving]
  - Drug interaction [Unknown]

NARRATIVE: CASE EVENT DATE: 20210803
